FAERS Safety Report 16712973 (Version 1)
Quarter: 2019Q3

REPORT INFORMATION
  Report Type: Spontaneous
  Country: DE (occurrence: DE)
  Receive Date: 20190817
  Receipt Date: 20190817
  Transmission Date: 20191004
  Serious: Yes (Other)
  Sender: FDA-Public Use
  Company Number: DE-AUROBINDO-AUR-APL-2019-053566

PATIENT

DRUGS (12)
  1. TAFAMIDIS MEGLUMINE [Suspect]
     Active Substance: TAFAMIDIS MEGLUMINE
     Indication: AMYLOIDOSIS
     Dosage: UNK (BLINDED, INFORMATION WITHHELD)
     Route: 048
     Dates: start: 20171018
  2. EPLERENONE. [Concomitant]
     Active Substance: EPLERENONE
     Indication: CARDIAC FAILURE
     Dosage: UNK
     Route: 065
     Dates: start: 201408
  3. XIPAMID [Concomitant]
     Active Substance: XIPAMIDE
     Indication: OEDEMA PERIPHERAL
     Dosage: UNK
     Route: 065
     Dates: start: 20190427
  4. ATORVASTATIN [Concomitant]
     Active Substance: ATORVASTATIN
     Indication: HYPERLIPIDAEMIA
     Dosage: UNK
     Route: 065
     Dates: start: 20180125
  5. CAMELLIA SINENSIS [Concomitant]
     Active Substance: GREEN TEA LEAF
     Indication: AMYLOIDOSIS
     Dosage: UNK
     Route: 065
     Dates: start: 201503
  6. AMIODARONE [Suspect]
     Active Substance: AMIODARONE
     Indication: PRODUCT USED FOR UNKNOWN INDICATION
     Dosage: 200 MILLIGRAM
     Route: 065
     Dates: start: 20190621
  7. TORASEMID [Concomitant]
     Active Substance: TORSEMIDE
     Indication: OEDEMA PERIPHERAL
     Dosage: UNK
     Route: 065
     Dates: start: 20190405
  8. CANDESARTAN. [Concomitant]
     Active Substance: CANDESARTAN
     Indication: HYPERTENSION
     Dosage: UNK
     Route: 065
     Dates: start: 20190427
  9. PHENPROCOUMON [Concomitant]
     Active Substance: PHENPROCOUMON
     Indication: THROMBOSIS PROPHYLAXIS
     Dosage: UNK
     Route: 065
     Dates: start: 20181113
  10. SOTALOL. [Concomitant]
     Active Substance: SOTALOL
     Indication: VENTRICULAR TACHYCARDIA
     Dosage: UNK
     Route: 065
     Dates: start: 20190405
  11. ALLOPURINOL. [Concomitant]
     Active Substance: ALLOPURINOL
     Indication: HYPERURICAEMIA
     Dosage: UNK
     Route: 065
     Dates: start: 20190427
  12. PANTOPRAZOLE [Concomitant]
     Active Substance: PANTOPRAZOLE
     Indication: GASTRITIS PROPHYLAXIS
     Dosage: UNK
     Route: 065
     Dates: start: 20180205

REACTIONS (3)
  - Ventricular tachycardia [Recovered/Resolved with Sequelae]
  - Syncope [Recovered/Resolved with Sequelae]
  - Electrolyte imbalance [Recovered/Resolved]

NARRATIVE: CASE EVENT DATE: 20190701
